FAERS Safety Report 4489948-X (Version None)
Quarter: 2004Q4

REPORT INFORMATION
  Report Type: 
  Country: None (occurrence: None)
  Receive Date: 20041101
  Receipt Date: 20011020
  Transmission Date: 20050328
  Serious: Yes (Life-Threatening, Hospitalization, Disabling)
  Sender: FDA-Public Use
  Company Number: GB-GLAXOSMITHKLINE-B0123972A

PATIENT
  Age: 62 Year
  Sex: Female

DRUGS (13)
  1. CEFTAZIDIME [Suspect]
     Indication: LOWER RESPIRATORY TRACT INFECTION
     Dosage: 2G THREE TIMES PER DAY
     Route: 042
     Dates: start: 20010819, end: 20010903
  2. GENTAMYCIN SULFATE [Suspect]
     Indication: LOWER RESPIRATORY TRACT INFECTION
     Dosage: 240MG PER DAY
     Route: 042
     Dates: start: 20010819, end: 20010903
  3. LOSARTAN POTASSIUM [Concomitant]
     Dosage: 100MG PER DAY
     Route: 048
     Dates: end: 20010912
  4. HYDROXYZINE [Concomitant]
     Dosage: 25MG TWICE PER DAY
     Route: 048
  5. MONTELUKAST [Concomitant]
     Dosage: 10MG PER DAY
     Route: 048
  6. PREMPAK-C [Concomitant]
     Dosage: .625MG PER DAY
     Route: 048
  7. AMINOPHYLLINE [Concomitant]
     Dosage: 700MG SEE DOSAGE TEXT
     Route: 048
  8. LANSOPRAZOLE [Concomitant]
     Dosage: 30MG PER DAY
     Route: 048
  9. PREDNISOLONE [Concomitant]
     Route: 048
  10. BENDROFLUAZIDE [Concomitant]
     Dosage: 2.5MG PER DAY
     Route: 048
  11. SERETIDE [Concomitant]
     Dosage: 2PUFF TWICE PER DAY
     Route: 055
  12. IPRATROPIUM BROMIDE [Concomitant]
     Dosage: 500MG FOUR TIMES PER DAY
     Route: 055
  13. SALBUTAMOL [Concomitant]
     Dosage: 5MG FOUR TIMES PER DAY
     Route: 055

REACTIONS (5)
  - BLOOD CREATININE INCREASED [None]
  - BLOOD POTASSIUM INCREASED [None]
  - BLOOD UREA INCREASED [None]
  - HAEMODIALYSIS [None]
  - RENAL FAILURE ACUTE [None]
